FAERS Safety Report 8881850 (Version 1)
Quarter: 2012Q4

REPORT INFORMATION
  Report Type: 
  Country: AT (occurrence: DE)
  Receive Date: 20121102
  Receipt Date: 20121102
  Transmission Date: 20130627
  Serious: Yes (Other)
  Sender: FDA-Public Use
  Company Number: DE-BRISTOL-MYERS SQUIBB COMPANY-17057449

PATIENT
  Age: 37 Year
  Sex: Male
  Weight: 76 kg

DRUGS (4)
  1. EFAVIRENZ [Suspect]
     Indication: HIV INFECTION
     Dates: start: 2003, end: 2006
  2. LAMIVUDINE + ZIDOVUDINE [Suspect]
     Indication: HIV INFECTION
     Dates: start: 2003, end: 2006
  3. SILDENAFIL [Concomitant]
  4. ATORVASTATIN [Concomitant]

REACTIONS (3)
  - Virologic failure [Unknown]
  - Hepatitis C [Unknown]
  - Viral mutation identified [Unknown]
